FAERS Safety Report 19928030 (Version 10)
Quarter: 2022Q3

REPORT INFORMATION
  Report Type: Report from Study
  Country: AR (occurrence: AR)
  Receive Date: 20211007
  Receipt Date: 20220909
  Transmission Date: 20221027
  Serious: Yes (Hospitalization, Other)
  Sender: FDA-Public Use
  Company Number: NVSC2021AR179159

PATIENT
  Age: 16 Year
  Sex: Female
  Weight: 50 kg

DRUGS (12)
  1. TRAMETINIB [Suspect]
     Active Substance: TRAMETINIB
     Indication: Metastatic malignant melanoma
     Dosage: 2 MG
     Route: 048
     Dates: start: 20210725, end: 20210728
  2. TRAMETINIB [Suspect]
     Active Substance: TRAMETINIB
     Indication: Neurofibrosarcoma
     Dosage: 1 MG
     Route: 048
     Dates: end: 20211126
  3. TRAMETINIB [Suspect]
     Active Substance: TRAMETINIB
     Dosage: 1 MG
     Route: 048
  4. TRAMETINIB [Suspect]
     Active Substance: TRAMETINIB
     Dosage: 1 MG, QD
     Route: 048
     Dates: start: 20210725, end: 20220801
  5. SIROLIMUS [Concomitant]
     Active Substance: SIROLIMUS
     Indication: Product used for unknown indication
     Dosage: UNK
     Route: 065
     Dates: start: 202107
  6. ENALAPRIL [Concomitant]
     Active Substance: ENALAPRIL
     Indication: Product used for unknown indication
     Dosage: 5 MG, Q12H (5 MG/DAILY)
     Route: 048
  7. LOSARTAN [Concomitant]
     Active Substance: LOSARTAN
     Indication: Product used for unknown indication
     Dosage: 50 MG, QD
     Route: 048
  8. AMLODIPINE [Concomitant]
     Active Substance: AMLODIPINE BESYLATE
     Indication: Product used for unknown indication
     Dosage: 5 MG, QD
     Route: 048
  9. CARVEDILOL [Concomitant]
     Active Substance: CARVEDILOL
     Indication: Product used for unknown indication
     Dosage: 3.125 MG, Q12H
     Route: 048
  10. CARVEDILOL [Concomitant]
     Active Substance: CARVEDILOL
     Dosage: 6.52 X 2
     Route: 065
     Dates: start: 20211126
  11. CARVEDILOL [Concomitant]
     Active Substance: CARVEDILOL
     Dosage: 6.25 MG, Q12H
     Route: 065
  12. FAMOTIDINE [Concomitant]
     Active Substance: FAMOTIDINE
     Indication: Product used for unknown indication
     Dosage: 20 MG, Q12H
     Route: 065

REACTIONS (31)
  - Diarrhoea [Recovered/Resolved]
  - Pyrexia [Unknown]
  - Blood chloride abnormal [Unknown]
  - Activated partial thromboplastin time abnormal [Unknown]
  - Metastases to lymph nodes [Unknown]
  - Malignant neoplasm progression [Unknown]
  - Metastases to lung [Unknown]
  - Abdominal lymphadenopathy [Unknown]
  - Metabolic disorder [Unknown]
  - Arthropathy [Unknown]
  - Lung disorder [Unknown]
  - Mass [Unknown]
  - Nodule [Unknown]
  - Pulmonary septal thickening [Unknown]
  - Biliary tract disorder [Unknown]
  - Shock [Unknown]
  - Hypotension [Unknown]
  - Ejection fraction decreased [Recovered/Resolved with Sequelae]
  - Dyspnoea [Unknown]
  - Liver injury [Unknown]
  - Toxicity to various agents [Recovering/Resolving]
  - Hyperchloraemia [Unknown]
  - Skin lesion [Unknown]
  - Pain [Unknown]
  - Blood alkaline phosphatase abnormal [Unknown]
  - Haemoglobin abnormal [Unknown]
  - Gamma-glutamyltransferase abnormal [Unknown]
  - Dermatitis acneiform [Recovering/Resolving]
  - Aspartate aminotransferase abnormal [Unknown]
  - Alanine aminotransferase abnormal [Unknown]
  - Acid base balance [Unknown]

NARRATIVE: CASE EVENT DATE: 20210728
